FAERS Safety Report 4988574-3 (Version None)
Quarter: 2006Q2

REPORT INFORMATION
  Report Type: 
  Country: None (occurrence: None)
  Receive Date: 20060502
  Receipt Date: 20060323
  Transmission Date: 20061013
  Serious: Yes (Other)
  Sender: FDA-Public Use
  Company Number: PHFR2006GB01231

PATIENT
  Age: 39 Year
  Sex: Male

DRUGS (6)
  1. CLOZARIL [Suspect]
     Indication: SCHIZOPHRENIA
     Dosage: 300MG DAILY
     Route: 048
     Dates: start: 20060309, end: 20060321
  2. SULPIRIDE [Suspect]
     Indication: AKATHISIA
     Dosage: 800MG DAILY
     Route: 048
     Dates: end: 20060321
  3. SULPIRIDE [Suspect]
     Dosage: 1200 MG/DAY
     Route: 048
     Dates: start: 20060309
  4. TRIHEXYPHENIDYL HYDROCHLORIDE [Suspect]
     Indication: AKATHISIA
     Dosage: 12 MG/DAY
     Route: 048
  5. TRIHEXYPHENIDYL HYDROCHLORIDE [Suspect]
     Dosage: 8MG DAILY
     Route: 048
     Dates: start: 20060309, end: 20060316
  6. TRIHEXYPHENIDYL HYDROCHLORIDE [Suspect]
     Dosage: 4MG DAILY
     Route: 048
     Dates: start: 20060317, end: 20060322

REACTIONS (17)
  - ABNORMAL BEHAVIOUR [None]
  - ALANINE AMINOTRANSFERASE INCREASED [None]
  - ANTIPSYCHOTIC DRUG LEVEL ABOVE THERAPEUTIC [None]
  - BLOOD CREATININE INCREASED [None]
  - BLOOD UREA INCREASED [None]
  - C-REACTIVE PROTEIN INCREASED [None]
  - CONFUSIONAL STATE [None]
  - DISORIENTATION [None]
  - DRUG EFFECT DECREASED [None]
  - DYSKINESIA [None]
  - HALLUCINATION, VISUAL [None]
  - HEADACHE [None]
  - MYOCLONUS [None]
  - RESTLESSNESS [None]
  - SOLILOQUY [None]
  - SOMNOLENCE [None]
  - SPEECH DISORDER [None]
